FAERS Safety Report 8175285-9 (Version None)
Quarter: 2012Q1

REPORT INFORMATION
  Report Type: 
  Country: None (occurrence: None)
  Receive Date: 20120229
  Receipt Date: 20120220
  Transmission Date: 20120608
  Serious: Yes (Hospitalization)
  Sender: FDA-Public Use
  Company Number: US-FRI-1000028168

PATIENT
  Sex: Female

DRUGS (8)
  1. ORTHO CYCLEN-28 [Concomitant]
  2. IMITREX [Concomitant]
  3. SKELAXIN [Concomitant]
  4. LEXAPRO [Suspect]
     Indication: ANXIETY
     Dosage: 10 MG
     Route: 048
  5. LEXAPRO [Suspect]
     Indication: SLEEP DISORDER
  6. ATIVAN [Concomitant]
  7. ALLEGRA [Concomitant]
  8. BUSPAR [Concomitant]

REACTIONS (8)
  - MATERNAL EXPOSURE DURING PREGNANCY [None]
  - DYSPNOEA [None]
  - BACK PAIN [None]
  - PREMATURE RUPTURE OF MEMBRANES [None]
  - CHEST PAIN [None]
  - ELECTROCARDIOGRAM ST SEGMENT ABNORMAL [None]
  - LIMB DISCOMFORT [None]
  - SINUS TACHYCARDIA [None]
